FAERS Safety Report 9987849 (Version 2)
Quarter: 2014Q2

REPORT INFORMATION
  Report Type: Spontaneous
  Country: US (occurrence: US)
  Receive Date: 20140307
  Receipt Date: 20140501
  Transmission Date: 20141212
  Serious: No
  Sender: FDA-Public Use
  Company Number: US-AMGEN-USASP2014013432

PATIENT
  Age: 61 Year
  Sex: Female

DRUGS (4)
  1. ENBREL [Suspect]
     Indication: RHEUMATOID ARTHRITIS
     Dosage: 50 MG WEEKLY
     Route: 065
     Dates: start: 20140211, end: 20140402
  2. ENBREL [Suspect]
     Dosage: UNK
     Route: 065
  3. ENBREL [Suspect]
     Dosage: UNK
     Route: 065
  4. PREDNISONE [Concomitant]
     Dosage: 80 G, UNK

REACTIONS (8)
  - Stomatitis [Not Recovered/Not Resolved]
  - Somnolence [Not Recovered/Not Resolved]
  - Acne [Not Recovered/Not Resolved]
  - Alopecia [Not Recovered/Not Resolved]
  - Musculoskeletal pain [Not Recovered/Not Resolved]
  - Pain in extremity [Not Recovered/Not Resolved]
  - Arthralgia [Not Recovered/Not Resolved]
  - Hordeolum [Not Recovered/Not Resolved]
